FAERS Safety Report 9528725 (Version 3)
Quarter: 2013Q4

REPORT INFORMATION
  Report Type: Spontaneous
  Country: CN (occurrence: CN)
  Receive Date: 20130917
  Receipt Date: 20131206
  Transmission Date: 20140711
  Serious: Yes (Other)
  Sender: FDA-Public Use
  Company Number: CN-NAPPMUNDI-GBR-2013-0015647

PATIENT
  Age: 60 Year
  Sex: Male

DRUGS (4)
  1. OXYCONTIN TABLET 40 MG [Suspect]
     Indication: CANCER PAIN
     Dosage: 40 MG, Q12H
     Route: 048
     Dates: start: 20130829, end: 20130903
  2. BARIUM [Concomitant]
     Indication: GASTROINTESTINAL EXAMINATION
     Dosage: UNK
     Dates: start: 20130511
  3. OXYCODONE / ACETAMINOPHEN [Concomitant]
     Indication: PAIN
  4. DIAZEPAM [Concomitant]
     Indication: PAIN
     Dosage: 2.5 MG, UNK
     Route: 048
     Dates: start: 20130903, end: 20130909

REACTIONS (1)
  - Delirium [Recovered/Resolved]
